FAERS Safety Report 7946322-9 (Version None)
Quarter: 2011Q4

REPORT INFORMATION
  Report Type: 
  Country: None (occurrence: None)
  Receive Date: 20111125
  Receipt Date: 20111117
  Transmission Date: 20120403
  Serious: Yes (Hospitalization)
  Sender: FDA-Public Use
  Company Number: 2011SP054048

PATIENT
  Age: 51 Year
  Sex: Female
  Weight: 67 kg

DRUGS (10)
  1. CONCOR [Concomitant]
  2. TEMISARTAN [Concomitant]
  3. DEPONIT [Concomitant]
  4. REMERON [Suspect]
     Indication: PRODUCT USED FOR UNKNOWN INDICATION
     Dosage: 30 MG;QD;PO
     Route: 048
  5. ASPIRIN [Concomitant]
  6. DESOGESTREL AND ETHINYL ESTRADIOL [Suspect]
     Indication: ORAL CONTRACEPTION
     Dosage: 1 DF;PO
     Route: 048
  7. OXAZEPAM [Concomitant]
  8. PRAVALOTIN [Concomitant]
  9. DILZEM [Concomitant]
  10. PLAVIX [Concomitant]

REACTIONS (3)
  - EPILEPSY [None]
  - CEREBRAL VENOUS THROMBOSIS [None]
  - ALCOHOL WITHDRAWAL SYNDROME [None]
